FAERS Safety Report 4304029-3 (Version None)
Quarter: 2004Q1

REPORT INFORMATION
  Report Type: 
  Country: None (occurrence: None)
  Receive Date: 20040223
  Receipt Date: 20031027
  Transmission Date: 20041129
  Serious: No
  Sender: FDA-Public Use
  Company Number: PHEH2003US09889

PATIENT
  Age: 60 Year
  Sex: Female

DRUGS (1)
  1. ZELNORM [Suspect]
     Indication: IRRITABLE BOWEL SYNDROME
     Dosage: 6 MG, BID
     Dates: start: 20031001

REACTIONS (3)
  - DISCOMFORT [None]
  - HEADACHE [None]
  - RASH [None]
